FAERS Safety Report 17216064 (Version 2)
Quarter: 2020Q3

REPORT INFORMATION
  Report Type: Spontaneous
  Country: US (occurrence: US)
  Receive Date: 20191230
  Receipt Date: 20200810
  Transmission Date: 20201102
  Serious: Yes (Other)
  Sender: FDA-Public Use
  Company Number: US-SA-2019SA357316

PATIENT

DRUGS (28)
  1. TAXOTERE [Suspect]
     Active Substance: DOCETAXEL
     Dosage: UNK UNK, Q3W
     Dates: start: 20170111, end: 20170111
  2. HERCEPTIN [Concomitant]
     Active Substance: TRASTUZUMAB
     Dosage: UNK
     Dates: start: 20170201, end: 20170201
  3. HERCEPTIN [Concomitant]
     Active Substance: TRASTUZUMAB
     Dosage: UNK
     Dates: start: 20170531, end: 20170531
  4. EFFEXOR [Concomitant]
     Active Substance: VENLAFAXINE HYDROCHLORIDE
     Dosage: UNK
     Dates: start: 2013
  5. PARAPLATIN [Concomitant]
     Active Substance: CARBOPLATIN
     Dosage: UNK, Q3W
     Dates: start: 20170111, end: 20170111
  6. EMLA [Concomitant]
     Active Substance: LIDOCAINE\PRILOCAINE
  7. DECADRON [Concomitant]
     Active Substance: DEXAMETHASONE
  8. SYNTHROID [Concomitant]
     Active Substance: LEVOTHYROXINE SODIUM
     Indication: THYROID DISORDER
     Dosage: UNK
     Dates: start: 2014
  9. KLOR?CON M20 [Concomitant]
     Active Substance: POTASSIUM CHLORIDE
     Dosage: UNK
     Dates: start: 201609, end: 201904
  10. ARIMIDEX [Concomitant]
     Active Substance: ANASTROZOLE
     Indication: BREAST CANCER FEMALE
     Dosage: UNK
     Dates: start: 20170201
  11. PALONOSETRON. [Concomitant]
     Active Substance: PALONOSETRON HYDROCHLORIDE
  12. FOSAPREPITANT [Concomitant]
     Active Substance: FOSAPREPITANT
  13. SYNTHROID [Concomitant]
     Active Substance: LEVOTHYROXINE SODIUM
     Dosage: UNK
     Dates: start: 2013
  14. ARIMIDEX [Concomitant]
     Active Substance: ANASTROZOLE
     Dosage: UNK
     Dates: start: 20170401
  15. TAXOTERE [Suspect]
     Active Substance: DOCETAXEL
     Indication: BREAST CANCER FEMALE
     Dosage: UNK UNK, Q3W
     Dates: start: 20160927, end: 20160927
  16. POTASSIUM [Concomitant]
     Active Substance: POTASSIUM
     Dosage: UNK
     Dates: start: 201609, end: 201904
  17. HERCEPTIN [Concomitant]
     Active Substance: TRASTUZUMAB
     Dosage: UNK
     Dates: start: 20170401, end: 20170401
  18. PERJETA [Concomitant]
     Active Substance: PERTUZUMAB
     Indication: BREAST CANCER FEMALE
     Dosage: UNK, Q3W
     Dates: start: 20160927, end: 20160927
  19. HERCEPTIN [Concomitant]
     Active Substance: TRASTUZUMAB
     Dosage: UNK
     Dates: start: 20170111, end: 20170111
  20. VENLAFAXINE [Concomitant]
     Active Substance: VENLAFAXINE HYDROCHLORIDE
  21. COMPAZINE [Concomitant]
     Active Substance: PROCHLORPERAZINE MALEATE
  22. AROMASIN [Concomitant]
     Active Substance: EXEMESTANE
     Dosage: UNK
     Dates: start: 2013
  23. NYSTATIN. [Concomitant]
     Active Substance: NYSTATIN
     Dosage: UNK
  24. XANAX [Concomitant]
     Active Substance: ALPRAZOLAM
     Dosage: UNK
     Dates: start: 201201
  25. PARAPLATIN [Concomitant]
     Active Substance: CARBOPLATIN
     Indication: BREAST CANCER FEMALE
     Dosage: UNK, Q3W
     Dates: start: 20160927, end: 20160927
  26. PERJETA [Concomitant]
     Active Substance: PERTUZUMAB
     Dosage: UNK, Q3W
     Dates: start: 20170111, end: 20170111
  27. HERCEPTIN [Concomitant]
     Active Substance: TRASTUZUMAB
     Indication: BREAST CANCER FEMALE
     Dosage: UNK, Q3W
     Dates: start: 20160927, end: 20160927
  28. DIPHENHYDRAMINE. [Concomitant]
     Active Substance: DIPHENHYDRAMINE

REACTIONS (1)
  - Alopecia [Recovering/Resolving]

NARRATIVE: CASE EVENT DATE: 201610
